FAERS Safety Report 14213394 (Version 3)
Quarter: 2017Q4

REPORT INFORMATION
  Report Type: Report from Study
  Country: None (occurrence: CH)
  Receive Date: 20171122
  Receipt Date: 20171128
  Transmission Date: 20180321
  Serious: Yes (Hospitalization, Other)
  Sender: FDA-Public Use
  Company Number: CH-ABBVIE-17K-151-2144011-00

PATIENT
  Sex: Male

DRUGS (8)
  1. DUODOPA [Suspect]
     Active Substance: CARBIDOPA\LEVODOPA
     Dosage: MORNING DOSE: 8ML?CONTINOUS DOSE: 4.8ML/H?EXTRA DOSE: 2ML
     Route: 050
  2. MAGNESIUM [Concomitant]
     Active Substance: MAGNESIUM
     Indication: PRODUCT USED FOR UNKNOWN INDICATION
     Dosage: 1 IN THE MORNING, 1 IN THE EVENING
     Route: 048
  3. MOVICOL [Concomitant]
     Active Substance: POLYETHYLENE GLYCOL 3350\POTASSIUM CHLORIDE\SODIUM BICARBONATE\SODIUM CHLORIDE
     Indication: PRODUCT USED FOR UNKNOWN INDICATION
     Route: 048
  4. DUODOPA [Suspect]
     Active Substance: CARBIDOPA\LEVODOPA
     Indication: PARKINSON^S DISEASE
     Dosage: MD 7ML,?CR 4.8ML/H?ED 1.2ML 16H THERAPY
     Route: 050
     Dates: start: 20161115
  5. DUODOPA [Suspect]
     Active Substance: CARBIDOPA\LEVODOPA
     Dosage: MORNING DOSE: 9ML?CONTINOUS DOSE: 4.6ML/H?EXTRA DOSE: 2ML UP TO 4 TIMES A DAY
     Route: 050
  6. LEPONEX [Concomitant]
     Active Substance: CLOZAPINE
     Indication: PRODUCT USED FOR UNKNOWN INDICATION
     Dosage: FREQUENCY: 0.5;FREQUENCY TIME: 1 DAYS; FREQUENCY TEXT: IN THE EVENING
     Route: 048
  7. PANTOZOL [Concomitant]
     Active Substance: PANTOPRAZOLE SODIUM
     Indication: PRODUCT USED FOR UNKNOWN INDICATION
     Dosage: 1 IN THE MORNING, 1 IN THE EVENING
     Route: 048
  8. MADOPAR DR [Concomitant]
     Indication: PRODUCT USED FOR UNKNOWN INDICATION
     Dosage: 200MG, 50MG.?FREQUENCY TEXT: AT 10.30PM
     Route: 048

REACTIONS (16)
  - Freezing phenomenon [Recovered/Resolved]
  - Dyskinesia [Recovered/Resolved]
  - Hyperkinesia [Unknown]
  - On and off phenomenon [Unknown]
  - Leukocytosis [Recovering/Resolving]
  - Dopamine dysregulation syndrome [Unknown]
  - Muscle rigidity [Unknown]
  - Akinesia [Recovering/Resolving]
  - Akinesia [Unknown]
  - Hyperhidrosis [Unknown]
  - Agitation [Unknown]
  - Blood creatine phosphokinase increased [Recovering/Resolving]
  - Cerebellar syndrome [Unknown]
  - Hyperkinesia [Recovering/Resolving]
  - Orthostatic hypotension [Unknown]
  - Muscle spasms [Recovered/Resolved]

NARRATIVE: CASE EVENT DATE: 2017
